FAERS Safety Report 22302316 (Version 1)
Quarter: 2023Q2

REPORT INFORMATION
  Report Type: Spontaneous
  Country: US (occurrence: US)
  Receive Date: 20230510
  Receipt Date: 20230510
  Transmission Date: 20230722
  Serious: Yes (Other)
  Sender: FDA-Public Use
  Company Number: US-009507513-2305USA002763

PATIENT
  Age: 31 Year
  Sex: Female

DRUGS (1)
  1. KEYTRUDA [Suspect]
     Active Substance: PEMBROLIZUMAB
     Indication: Breast cancer stage II
     Route: 042

REACTIONS (8)
  - Immune-mediated endocrinopathy [Unknown]
  - Nausea [Unknown]
  - Vomiting [Unknown]
  - Blood glucose abnormal [Unknown]
  - Fatigue [Unknown]
  - Cortisol decreased [Unknown]
  - Anti-thyroid antibody increased [Unknown]
  - Blood thyroid stimulating hormone increased [Unknown]
